FAERS Safety Report 5117960-6 (Version None)
Quarter: 2006Q3

REPORT INFORMATION
  Report Type: 
  Country: None (occurrence: None)
  Receive Date: 20060926
  Receipt Date: 20060911
  Transmission Date: 20061208
  Serious: Yes (Death)
  Sender: FDA-Public Use
  Company Number: 2006BH004358

PATIENT
  Age: 75 Year
  Sex: Male

DRUGS (5)
  1. NAVELBINE [Suspect]
     Indication: MULTIPLE MYELOMA
     Dosage: IV
     Route: 042
     Dates: start: 19980908, end: 19980911
  2. DEXAMETHASONE TAB [Suspect]
     Indication: MULTIPLE MYELOMA
     Dosage: PO
     Route: 048
     Dates: start: 19980908, end: 19980911
  3. RANITIDINE [Concomitant]
  4. DIGOXIN [Concomitant]
  5. AREDIA [Concomitant]

REACTIONS (2)
  - AGRANULOCYTOSIS [None]
  - CARDIAC FAILURE [None]
